FAERS Safety Report 9255048 (Version 1)
Quarter: 2013Q2

REPORT INFORMATION
  Report Type: Spontaneous
  Country: US (occurrence: None)
  Receive Date: 20130418
  Receipt Date: 20130418
  Transmission Date: 20140414
  Serious: Yes (Hospitalization)
  Sender: FDA-Public Use
  Company Number: US-LHC-2013018

PATIENT
  Age: 34 Year
  Sex: Female

DRUGS (3)
  1. CARBON DIOXIDE [Suspect]
     Indication: LAPAROSCOPY
     Dosage: LESS THAN 75 MINUTES
  2. SEVOFLURANE [Concomitant]
  3. NITROUS OXIDE [Concomitant]

REACTIONS (15)
  - Necrosis ischaemic [None]
  - Acute abdomen [None]
  - Atrial fibrillation [None]
  - Hypotension [None]
  - Abdominal adhesions [None]
  - Intestinal perforation [None]
  - Systemic candida [None]
  - Neuropathy peripheral [None]
  - Pneumonia [None]
  - Decubitus ulcer [None]
  - Thrombocytopenia [None]
  - Gastrointestinal haemorrhage [None]
  - Shock [None]
  - Cardio-respiratory arrest [None]
  - Deep vein thrombosis [None]
